FAERS Safety Report 9162316 (Version 1)
Quarter: 2013Q1

REPORT INFORMATION
  Report Type: Spontaneous
  Country: SE (occurrence: None)
  Receive Date: 20130222
  Receipt Date: 20130222
  Transmission Date: 20140127
  Serious: Yes (Other)
  Sender: FDA-Public Use
  Company Number: SYM-2013-00758

PATIENT
  Sex: Female

DRUGS (1)
  1. ZYBAN [Suspect]
     Indication: PRODUCT USED FOR UNKNOWN INDICATION
     Route: 048
     Dates: end: 20121221

REACTIONS (12)
  - Cerebrovascular accident [None]
  - Malaise [None]
  - Fatigue [None]
  - Grip strength decreased [None]
  - Neurological symptom [None]
  - Ataxia [None]
  - Dysarthria [None]
  - Bradyphrenia [None]
  - Dysgraphia [None]
  - Gait disturbance [None]
  - Blood pressure increased [None]
  - Heart rate increased [None]
